FAERS Safety Report 4503077-8 (Version None)
Quarter: 2004Q4

REPORT INFORMATION
  Report Type: 
  Country: None (occurrence: None)
  Receive Date: 20041112
  Receipt Date: 20041104
  Transmission Date: 20050328
  Serious: Yes (Death, Hospitalization)
  Sender: FDA-Public Use
  Company Number: 2004AP05615

PATIENT
  Age: 20 Year

DRUGS (4)
  1. ATENOLOL [Suspect]
     Dates: start: 19970101
  2. ENALAPRIL MALEATE [Concomitant]
  3. DIURETICS [Concomitant]
  4. PIMOBENDAN [Concomitant]

REACTIONS (3)
  - CARDIOPULMONARY FAILURE [None]
  - PLEURAL EFFUSION [None]
  - PULMONARY OEDEMA [None]
